FAERS Safety Report 15353530 (Version 4)
Quarter: 2018Q4

REPORT INFORMATION
  Report Type: Spontaneous
  Country: US (occurrence: US)
  Receive Date: 20180905
  Receipt Date: 20181109
  Transmission Date: 20190204
  Serious: Yes (Death, Hospitalization)
  Sender: FDA-Public Use
  Company Number: US-TAIHO ONCOLOGY  INC-EU-2018-01294

PATIENT
  Age: 55 Year
  Sex: Male

DRUGS (10)
  1. TYLENOL [Concomitant]
     Active Substance: ACETAMINOPHEN
     Dosage: NI
  2. LONSURF [Suspect]
     Active Substance: TIPIRACIL HYDROCHLORIDE\TRIFLURIDINE
     Indication: COLON CANCER METASTATIC
     Dosage: CURRENT CYCLE UNKNOWN, LONSURF STRENGTH 20 AND 15 MG
     Route: 048
     Dates: start: 20180727, end: 20181001
  3. ONDANSETRON [Concomitant]
     Active Substance: ONDANSETRON
     Dosage: NI
  4. PROCHLORPERAZINE. [Concomitant]
     Active Substance: PROCHLORPERAZINE
     Dosage: NI
  5. AMLODIPINE [Concomitant]
     Active Substance: AMLODIPINE BESYLATE
     Dosage: NI
  6. MIRALAX [Concomitant]
     Active Substance: POLYETHYLENE GLYCOL 3350
     Dosage: NI
  7. LONSURF [Suspect]
     Active Substance: TIPIRACIL HYDROCHLORIDE\TRIFLURIDINE
     Indication: METASTASES TO LYMPH NODES
  8. HYDROCODONE [Concomitant]
     Active Substance: HYDROCODONE
     Dosage: NI
  9. ADVIL [Concomitant]
     Active Substance: IBUPROFEN
     Dosage: NI
  10. LOPERAMIDE [Concomitant]
     Active Substance: LOPERAMIDE
     Dosage: NI

REACTIONS (9)
  - Death [Fatal]
  - Disease progression [Unknown]
  - Abdominal pain upper [Unknown]
  - Cough [Unknown]
  - Pleural effusion [Unknown]
  - Eating disorder [Unknown]
  - Dyspnoea [Unknown]
  - Hypoxia [Unknown]
  - Pneumonia [Unknown]

NARRATIVE: CASE EVENT DATE: 2018
